FAERS Safety Report 18875969 (Version 2)
Quarter: 2021Q2

REPORT INFORMATION
  Report Type: Spontaneous
  Country: US (occurrence: US)
  Receive Date: 20210210
  Receipt Date: 20210415
  Transmission Date: 20210717
  Serious: Yes (Death, Other)
  Sender: FDA-Public Use
  Company Number: US-TEVA-2021-US-1876975

PATIENT
  Sex: Female

DRUGS (4)
  1. VALSARTAN/HYDROCHLOROTHIAZIDE AUROBINDO [Suspect]
     Active Substance: HYDROCHLOROTHIAZIDE\VALSARTAN
     Indication: HYPERTENSION
  2. VALSARTAN/HYDROCHLOROTHIAZIDE AUROBINDO [Suspect]
     Active Substance: HYDROCHLOROTHIAZIDE\VALSARTAN
     Indication: HYPERTENSION
     Dosage: 80 MG /12.5 MG
     Route: 065
     Dates: start: 20160303, end: 20180428
  3. VALSARTAN/HYDROCHLOROTHIAZIDE MYLAN [Suspect]
     Active Substance: HYDROCHLOROTHIAZIDE\VALSARTAN
     Indication: HYPERTENSION
     Dosage: 80 MG /12.5 MG
     Route: 065
     Dates: start: 20140205, end: 20150201
  4. VALSARTAN/HYDROCHLOROTHIAZIDE SOLCO [Suspect]
     Active Substance: HYDROCHLOROTHIAZIDE\VALSARTAN
     Indication: HYPERTENSION
     Dosage: 80 MG /12.5 MG
     Route: 065
     Dates: start: 20160910, end: 20161209

REACTIONS (3)
  - Pancreatic carcinoma [Unknown]
  - Hepatic cancer [Unknown]
  - Death [Fatal]
